FAERS Safety Report 4565126-0 (Version None)
Quarter: 2005Q1

REPORT INFORMATION
  Report Type: 
  Country: None (occurrence: None)
  Receive Date: 20050126
  Receipt Date: 20050114
  Transmission Date: 20050727
  Serious: Yes (Death, Hospitalization)
  Sender: FDA-Public Use
  Company Number: F01200500034

PATIENT
  Age: 69 Year
  Sex: Male

DRUGS (7)
  1. OXALIPLATIN [Suspect]
     Indication: METASTATIC NEOPLASM
     Dosage: 110 MG Q2W
     Route: 042
     Dates: start: 20041115, end: 20041115
  2. FLUOROURACIL [Suspect]
     Dosage: 510 MG IV BOLUS AND 1700 MG IV CONTINOUS INFUSION, Q2W
     Route: 042
     Dates: start: 20041115, end: 20041117
  3. LEUCOVORIN CALCIUM [Suspect]
     Dosage: 340 MG Q2W
     Route: 042
     Dates: start: 20041115, end: 20041116
  4. BEVACIZUMAB OR PLACEBO SOLUTION 1 UNIT [Suspect]
     Dosage: 1 UNIT Q2W
     Route: 042
     Dates: start: 20041115, end: 20041115
  5. ENALAPRIL MALEATE [Concomitant]
  6. METFORMIN HCL [Concomitant]
  7. CEFONICID                  (CEFONICIDE SODIUM) [Concomitant]

REACTIONS (13)
  - ANOREXIA [None]
  - ASTHENIA [None]
  - ATRIAL FIBRILLATION [None]
  - CLOSTRIDIUM COLITIS [None]
  - DISSEMINATED INTRAVASCULAR COAGULATION [None]
  - HYPERBILIRUBINAEMIA [None]
  - HYPERKALAEMIA [None]
  - HYPOALBUMINAEMIA [None]
  - HYPOCHLORAEMIA [None]
  - INTERNATIONAL NORMALISED RATIO INCREASED [None]
  - MULTI-ORGAN FAILURE [None]
  - PLEURAL EFFUSION [None]
  - PULMONARY OEDEMA [None]
